FAERS Safety Report 16227685 (Version 2)
Quarter: 2019Q3

REPORT INFORMATION
  Report Type: Spontaneous
  Country: DE (occurrence: DE)
  Receive Date: 20190423
  Receipt Date: 20190701
  Transmission Date: 20191004
  Serious: Yes (Other)
  Sender: FDA-Public Use
  Company Number: DE-BIOFRONTERA-000504

PATIENT
  Age: 83 Year
  Sex: Female

DRUGS (1)
  1. AMELUZ [Suspect]
     Active Substance: AMINOLEVULINIC ACID HYDROCHLORIDE
     Indication: BASAL CELL CARCINOMA
     Route: 061
     Dates: start: 20180918, end: 20180918

REACTIONS (5)
  - Basal cell carcinoma [Not Recovered/Not Resolved]
  - Incorrect dose administered [Recovered/Resolved]
  - Application site pain [Recovered/Resolved]
  - Drug ineffective [Not Recovered/Not Resolved]
  - Condition aggravated [Not Recovered/Not Resolved]

NARRATIVE: CASE EVENT DATE: 20180918
